FAERS Safety Report 15239868 (Version 2)
Quarter: 2018Q3

REPORT INFORMATION
  Report Type: Spontaneous
  Country: US (occurrence: US)
  Receive Date: 20180803
  Receipt Date: 20180830
  Transmission Date: 20181010
  Serious: No
  Sender: FDA-Public Use
  Company Number: US-009507513-1808USA000271

PATIENT
  Sex: Male

DRUGS (1)
  1. ASMANEX [Suspect]
     Active Substance: MOMETASONE FUROATE
     Indication: ASTHMA
     Dosage: 110 MICROGRAM, QD
     Route: 055

REACTIONS (5)
  - Incorrect dose administered by device [Unknown]
  - Product quality issue [Unknown]
  - No adverse event [Unknown]
  - Product availability issue [Unknown]
  - Poor quality device used [Unknown]
